FAERS Safety Report 10659737 (Version 1)
Quarter: 2014Q4

REPORT INFORMATION
  Report Type: Spontaneous
  Country: US (occurrence: None)
  Receive Date: 20141205
  Receipt Date: 20141205
  Transmission Date: 20150529
  Serious: No
  Sender: FDA-Public Use
  Company Number: 163-POMAL-14063824

PATIENT
  Age: 67 Year
  Sex: Male
  Weight: 72.58 kg

DRUGS (5)
  1. POMALYST [Suspect]
     Active Substance: POMALIDOMIDE
     Indication: PLASMA CELL MYELOMA
     Dosage: 4 MG, 21 IN 21 D, PO
     Route: 048
     Dates: start: 20140613, end: 20140615
  2. NORVASC [Concomitant]
     Active Substance: AMLODIPINE BESYLATE
  3. CLARITINE (LORATADINE) [Concomitant]
  4. ATENOLOL. [Concomitant]
     Active Substance: ATENOLOL
  5. ZOFRAN (ONDANSETRON HYDROCHLORIDE) [Concomitant]

REACTIONS (3)
  - Hypoaesthesia [None]
  - Drug intolerance [None]
  - Muscular weakness [None]

NARRATIVE: CASE EVENT DATE: 2014
